FAERS Safety Report 16201120 (Version 1)
Quarter: 2019Q2

REPORT INFORMATION
  Report Type: Spontaneous
  Country: DE (occurrence: DE)
  Receive Date: 20190416
  Receipt Date: 20190416
  Transmission Date: 20190711
  Serious: Yes (Other)
  Sender: FDA-Public Use
  Company Number: DE-HETERO CORPORATE-HET2019DE00452

PATIENT
  Age: 60 Year
  Sex: Male

DRUGS (12)
  1. ZONISAMIDE. [Suspect]
     Active Substance: ZONISAMIDE
     Indication: POST-ANOXIC MYOCLONUS
     Dosage: UNK
     Route: 065
  2. ESLICARBAZEPINE [Suspect]
     Active Substance: ESLICARBAZEPINE
     Indication: POST-ANOXIC MYOCLONUS
     Dosage: UNK
     Route: 065
  3. GABAPENTIN. [Suspect]
     Active Substance: GABAPENTIN
     Indication: POST-ANOXIC MYOCLONUS
     Dosage: UNK
     Route: 065
  4. CLONAZEPAM. [Suspect]
     Active Substance: CLONAZEPAM
     Indication: POST-ANOXIC MYOCLONUS
     Dosage: 1.5 MG, QD
     Route: 065
  5. LAMOTRIGINE. [Suspect]
     Active Substance: LAMOTRIGINE
     Indication: POST-ANOXIC MYOCLONUS
     Dosage: UNK
     Route: 065
  6. LEVETIRACETAM. [Suspect]
     Active Substance: LEVETIRACETAM
     Indication: POST-ANOXIC MYOCLONUS
     Dosage: 1500 MG, QD
     Route: 065
  7. PREGABALIN. [Suspect]
     Active Substance: PREGABALIN
     Indication: POST-ANOXIC MYOCLONUS
     Dosage: UNK
     Route: 065
  8. LEVETIRACETAM. [Suspect]
     Active Substance: LEVETIRACETAM
     Dosage: 500 MG, QD
     Route: 065
  9. VALPROIC ACID. [Suspect]
     Active Substance: VALPROIC ACID
     Indication: POST-ANOXIC MYOCLONUS
     Dosage: UNK
     Route: 065
  10. TOPIRAMATE. [Suspect]
     Active Substance: TOPIRAMATE
     Indication: POST-ANOXIC MYOCLONUS
     Dosage: UNK
     Route: 065
  11. CLONAZEPAM. [Suspect]
     Active Substance: CLONAZEPAM
     Dosage: 2 MG, QD
     Route: 065
  12. BRIVARACETAM [Suspect]
     Active Substance: BRIVARACETAM
     Indication: POST-ANOXIC MYOCLONUS
     Dosage: 150 MG, QD
     Route: 065

REACTIONS (9)
  - Drug ineffective [Unknown]
  - Disorganised speech [Unknown]
  - Vomiting [Unknown]
  - Rash [Unknown]
  - Salivary hypersecretion [Unknown]
  - Nausea [Unknown]
  - Parkinsonism [Unknown]
  - Dystonia [Unknown]
  - Fatigue [Unknown]
